FAERS Safety Report 8019587-5 (Version None)
Quarter: 2012Q1

REPORT INFORMATION
  Report Type: 
  Country: None (occurrence: None)
  Receive Date: 20120103
  Receipt Date: 20111227
  Transmission Date: 20120608
  Serious: Yes (Other)
  Sender: FDA-Public Use
  Company Number: US-CEPHALON-2011006380

PATIENT
  Sex: Female
  Weight: 109 kg

DRUGS (4)
  1. NUVIGIL [Suspect]
     Indication: HYPERSOMNIA
     Route: 048
     Dates: start: 20111130, end: 20111201
  2. CELEXA [Concomitant]
  3. AMBIEN [Concomitant]
  4. ALBUTEROL [Concomitant]

REACTIONS (3)
  - CONFUSIONAL STATE [None]
  - AMNESIA [None]
  - APHASIA [None]
